FAERS Safety Report 15065815 (Version 2)
Quarter: 2018Q4

REPORT INFORMATION
  Report Type: Spontaneous
  Country: US (occurrence: US)
  Receive Date: 20180626
  Receipt Date: 20181022
  Transmission Date: 20190204
  Serious: Yes (Other)
  Sender: FDA-Public Use
  Company Number: US-SUN PHARMACEUTICAL INDUSTRIES LTD-2018US-176565

PATIENT
  Age: 31 Year
  Sex: Female

DRUGS (3)
  1. METOPROLOL. [Suspect]
     Active Substance: METOPROLOL
     Indication: VENTRICULAR EXTRASYSTOLES
     Dosage: 25 MG, DAILY
     Route: 065
  2. SOTALOL. [Suspect]
     Active Substance: SOTALOL
     Indication: VENTRICULAR EXTRASYSTOLES
     Dosage: 80 MG, BID
     Route: 065
  3. SOTALOL. [Suspect]
     Active Substance: SOTALOL
     Dosage: 120 MG, BID
     Route: 065

REACTIONS (2)
  - Exposure during pregnancy [Unknown]
  - Drug ineffective [Unknown]
